FAERS Safety Report 19765150 (Version 1)
Quarter: 2021Q3

REPORT INFORMATION
  Report Type: Spontaneous
  Country: US (occurrence: US)
  Receive Date: 20210830
  Receipt Date: 20210830
  Transmission Date: 20211014
  Serious: No
  Sender: FDA-Public Use
  Company Number: US-ANIPHARMA-2020-US-017965

PATIENT
  Sex: 0

DRUGS (3)
  1. IBRANCE [Suspect]
     Active Substance: PALBOCICLIB
     Indication: BREAST CANCER METASTATIC
     Dosage: 100 MG DAILY FOR 21 DAYS, THEN OFF 7 DAYS
     Route: 048
     Dates: start: 201908
  2. ELIQUIS [Suspect]
     Active Substance: APIXABAN
     Route: 065
  3. ANASTROZOLE. [Suspect]
     Active Substance: ANASTROZOLE
     Indication: PRODUCT USED FOR UNKNOWN INDICATION
     Route: 065

REACTIONS (7)
  - Nausea [Unknown]
  - Arthralgia [Unknown]
  - Fatigue [Unknown]
  - Contusion [Unknown]
  - Alopecia [Unknown]
  - Blood calcium decreased [Unknown]
  - Vitamin D decreased [Unknown]
